FAERS Safety Report 20346361 (Version 3)
Quarter: 2024Q1

REPORT INFORMATION
  Report Type: Other
  Country: US (occurrence: None)
  Receive Date: 20220118
  Receipt Date: 20240216
  Transmission Date: 20240410
  Serious: Yes (Other)
  Sender: FDA-Public Use
  Company Number: US-ROCHE-2999810

PATIENT
  Age: 56 Year
  Sex: Female
  Weight: 55.388 kg

DRUGS (5)
  1. OCREVUS [Suspect]
     Active Substance: OCRELIZUMAB
     Indication: Primary progressive multiple sclerosis
     Dosage: DATE OF TREATMENT: 03/DEC/2019, 22/JUN/2020, 12/07/2020, 08/JUN/2021 , 08/DEC/2021
     Route: 042
     Dates: start: 2018
  2. ZITHROMAX [Concomitant]
     Active Substance: AZITHROMYCIN DIHYDRATE
     Dosage: TOTAL OF 5 DAYS, LAST DOSE ADMINISTERED TODAY ;ONGOING: NO
     Route: 048
  3. MODERNA COVID-19 VACCINE [Concomitant]
     Active Substance: ELASOMERAN
     Dates: start: 20210127
  4. MODERNA COVID-19 VACCINE [Concomitant]
     Active Substance: ELASOMERAN
     Dates: start: 20210225
  5. MODERNA COVID-19 VACCINE [Concomitant]
     Active Substance: ELASOMERAN
     Dosage: THIRD SHOT/FULL SHOT
     Dates: start: 20210910

REACTIONS (4)
  - COVID-19 [Recovered/Resolved]
  - Sinus disorder [Unknown]
  - Bronchitis [Recovered/Resolved]
  - Neuropathy peripheral [Not Recovered/Not Resolved]

NARRATIVE: CASE EVENT DATE: 20211228
